FAERS Safety Report 9057544 (Version 1)
Quarter: 2013Q1

REPORT INFORMATION
  Report Type: Spontaneous
  Country: US (occurrence: None)
  Receive Date: 20130204
  Receipt Date: 20130204
  Transmission Date: 20140127
  Serious: Yes (Other)
  Sender: FDA-Public Use
  Company Number: None

PATIENT
  Age: 45 Year
  Sex: Female
  Weight: 66.23 kg

DRUGS (1)
  1. XYLOCAINE [Suspect]
     Indication: CERVICAL POLYPECTOMY
     Route: 005
     Dates: start: 20130129

REACTIONS (6)
  - Palpitations [None]
  - Neck pain [None]
  - Headache [None]
  - Pallor [None]
  - Toothache [None]
  - Nausea [None]
